FAERS Safety Report 9915342 (Version 2)
Quarter: 2014Q1

REPORT INFORMATION
  Report Type: Spontaneous
  Country: US (occurrence: US)
  Receive Date: 20140221
  Receipt Date: 20140221
  Transmission Date: 20141002
  Serious: Yes (Other)
  Sender: FDA-Public Use
  Company Number: US-BEH-2013036214

PATIENT
  Age: 13 Month
  Sex: Male

DRUGS (1)
  1. FVIII [Suspect]
     Indication: FACTOR VIII DEFICIENCY

REACTIONS (2)
  - Inhibiting antibodies [Unknown]
  - Drug ineffective for unapproved indication [Unknown]
